FAERS Safety Report 13874731 (Version 1)
Quarter: 2017Q3

REPORT INFORMATION
  Report Type: Spontaneous
  Country: US (occurrence: US)
  Receive Date: 20170816
  Receipt Date: 20170816
  Transmission Date: 20171127
  Serious: No
  Sender: FDA-Public Use
  Company Number: US-ROCHE-1338644

PATIENT
  Sex: Female

DRUGS (4)
  1. LUCENTIS [Suspect]
     Active Substance: RANIBIZUMAB
     Indication: GLAUCOMA
  2. LUCENTIS [Suspect]
     Active Substance: RANIBIZUMAB
     Indication: OCULAR NEOPLASM
     Route: 065
  3. LUCENTIS [Suspect]
     Active Substance: RANIBIZUMAB
     Indication: AGE-RELATED MACULAR DEGENERATION
  4. LUCENTIS [Suspect]
     Active Substance: RANIBIZUMAB
     Indication: BLISTER

REACTIONS (6)
  - Arthralgia [Unknown]
  - Myalgia [Unknown]
  - Eye pain [Unknown]
  - Peripheral swelling [Unknown]
  - Muscle tightness [Unknown]
  - Therapy non-responder [Unknown]
